FAERS Safety Report 20850665 (Version 1)
Quarter: 2022Q2

REPORT INFORMATION
  Report Type: Spontaneous
  Country: GB (occurrence: GB)
  Receive Date: 20220519
  Receipt Date: 20220519
  Transmission Date: 20220721
  Serious: Yes (Other)
  Sender: FDA-Public Use
  Company Number: GB-MYLANLABS-2022M1035768

PATIENT
  Sex: Female

DRUGS (4)
  1. CLOZARIL [Suspect]
     Active Substance: CLOZAPINE
     Indication: Schizophrenia
     Dosage: UNK
     Route: 048
     Dates: start: 20161025
  2. CLOZARIL [Suspect]
     Active Substance: CLOZAPINE
     Dosage: 600 MILLIGRAM, QD
     Route: 048
  3. CLOZARIL [Suspect]
     Active Substance: CLOZAPINE
     Dosage: 700 MILLIGRAM, QD
     Route: 048
  4. VALPROIC ACID [Concomitant]
     Active Substance: VALPROIC ACID
     Dosage: UNK

REACTIONS (3)
  - Renal impairment [Unknown]
  - Antipsychotic drug level increased [Unknown]
  - Mental disorder [Unknown]

NARRATIVE: CASE EVENT DATE: 20190101
